FAERS Safety Report 14685655 (Version 12)
Quarter: 2022Q1

REPORT INFORMATION
  Report Type: Spontaneous
  Country: CA (occurrence: CA)
  Receive Date: 20180327
  Receipt Date: 20220315
  Transmission Date: 20220423
  Serious: Yes (Hospitalization, Other)
  Sender: FDA-Public Use
  Company Number: CA-PFIZER INC-2018115963

PATIENT
  Age: 63 Year
  Sex: Female

DRUGS (17)
  1. SOMAVERT [Suspect]
     Active Substance: PEGVISOMANT
     Indication: Acromegaly
     Dosage: 25 MG, 1X/DAY
     Route: 058
     Dates: start: 20160822, end: 2017
  2. SOMAVERT [Suspect]
     Active Substance: PEGVISOMANT
     Dosage: 30 MG OD (1X/DAY) ALTERNATING WITH 25 MG OD (1X/DAY) EVERY 2 DAYS
     Route: 058
     Dates: start: 2017, end: 2017
  3. SOMAVERT [Suspect]
     Active Substance: PEGVISOMANT
     Dosage: 30 MG, 1X/DAY
     Route: 058
     Dates: start: 2017
  4. SOMAVERT [Suspect]
     Active Substance: PEGVISOMANT
     Dosage: 30 MG, 6X/WEEK AND OFF ON SUNDAY
     Route: 058
     Dates: start: 2017
  5. CITALOPRAM [Concomitant]
     Active Substance: CITALOPRAM HYDROBROMIDE
     Dosage: 20 MG OD (1X/DAY)
     Route: 048
  6. PERINDOPRIL [Concomitant]
     Active Substance: PERINDOPRIL
     Dosage: 10 MG OD (1X/DAY) (AM)(MORNING)
     Route: 048
  7. GABAPENTIN [Concomitant]
     Active Substance: GABAPENTIN
     Dosage: 600 MG BID (2X/DAY)
     Route: 048
  8. HYDROCORTISONE [Concomitant]
     Active Substance: HYDROCORTISONE
     Dosage: 15 MG AM (MORNING)
     Route: 048
  9. HYDROCORTISONE [Concomitant]
     Active Substance: HYDROCORTISONE
     Dosage: 5 MG PM (NIGHT)
     Route: 048
     Dates: start: 201611
  10. INSULINA HUMALOG [Concomitant]
     Dosage: 12 UNITS AM (MORNING)
     Route: 058
  11. INSULINA HUMALOG [Concomitant]
     Dosage: 14 UNITS (INCREASE 2-3 UNITS PRN (AS NEEDED))
     Route: 058
  12. LANTUS [Concomitant]
     Active Substance: INSULIN GLARGINE
     Dosage: 18 UNITS AM (MORNING)
     Route: 058
  13. LANTUS [Concomitant]
     Active Substance: INSULIN GLARGINE
     Dosage: 26 UNITS PM (NIGHT)
     Route: 058
  14. METFORMIN [Concomitant]
     Active Substance: METFORMIN HYDROCHLORIDE
     Dosage: 250 MG BID (2X/DAY)
     Route: 048
  15. METOPROLOL [Concomitant]
     Active Substance: METOPROLOL
     Dosage: 25 MG BID (2X/DAY)
     Route: 048
  16. SYNTHROID [Concomitant]
     Active Substance: LEVOTHYROXINE SODIUM
     Dosage: UNK
     Route: 048
  17. ZOPICLONE [Concomitant]
     Active Substance: ZOPICLONE
     Dosage: 7.5 MG Q (EVERY) HS (BEFORE BED)
     Route: 048

REACTIONS (20)
  - Dehydration [Unknown]
  - Adrenal insufficiency [Unknown]
  - Blood pressure decreased [Unknown]
  - Sepsis [Unknown]
  - Clostridium difficile infection [Recovered/Resolved]
  - Off label use [Unknown]
  - Product dose omission issue [Unknown]
  - Wrong technique in device usage process [Unknown]
  - Influenza [Unknown]
  - Fatigue [Not Recovered/Not Resolved]
  - Nausea [Not Recovered/Not Resolved]
  - Vomiting [Not Recovered/Not Resolved]
  - Diarrhoea [Not Recovered/Not Resolved]
  - Chills [Unknown]
  - Contusion [Recovering/Resolving]
  - Immune system disorder [Unknown]
  - Injection site pain [Unknown]
  - Multiple use of single-use product [Unknown]
  - Cystitis [Recovered/Resolved]
  - Dental discomfort [Recovered/Resolved]

NARRATIVE: CASE EVENT DATE: 20180201
